FAERS Safety Report 5381069-7 (Version None)
Quarter: 2007Q3

REPORT INFORMATION
  Report Type: 
  Country: None (occurrence: None)
  Receive Date: 20070706
  Receipt Date: 20070702
  Transmission Date: 20080115
  Serious: Yes (Hospitalization, Other)
  Sender: FDA-Public Use
  Company Number: US-PFIZER INC-2005088162

PATIENT
  Sex: Female

DRUGS (14)
  1. CELEBREX [Suspect]
     Indication: OSTEOARTHRITIS
  2. TOPROL-XL [Concomitant]
     Route: 065
  3. PLAVIX [Concomitant]
     Route: 065
  4. LASIX [Concomitant]
     Route: 065
  5. TEGRETOL [Concomitant]
     Route: 065
  6. TOPAMAX [Concomitant]
     Route: 065
  7. LISINOPRIL [Concomitant]
     Route: 065
  8. METFORMIN HCL [Concomitant]
     Route: 065
  9. LIPITOR [Concomitant]
     Route: 065
  10. ACIPHEX [Concomitant]
     Route: 065
  11. MAXAIR [Concomitant]
     Route: 065
  12. ULTRACET [Concomitant]
     Route: 065
  13. ZYRTEC [Concomitant]
     Route: 065
  14. ST. JOHN'S WORT [Concomitant]
     Route: 065

REACTIONS (5)
  - ACUTE CORONARY SYNDROME [None]
  - CARDIAC DISORDER [None]
  - CORONARY ARTERY DISEASE [None]
  - MYOCARDIAL INFARCTION [None]
  - THROMBOSIS [None]
